FAERS Safety Report 18224831 (Version 1)
Quarter: 2020Q3

REPORT INFORMATION
  Report Type: Other
  Country: US (occurrence: US)
  Receive Date: 20200903
  Receipt Date: 20200903
  Transmission Date: 20201103
  Serious: Yes (Other)
  Sender: FDA-Public Use
  Company Number: US-ROCHE-2669451

PATIENT
  Sex: Male

DRUGS (17)
  1. TRADJENTA [Concomitant]
     Active Substance: LINAGLIPTIN
     Route: 048
  2. VITAMIN D3 [Concomitant]
     Active Substance: CHOLECALCIFEROL
     Dosage: 2 TABLET BY MOUTH ONCE DAILY? (TABLET 1000UNIT)
     Route: 011
  3. INSULIN GLARGINE [Concomitant]
     Active Substance: INSULIN GLARGINE
     Dosage: INJECTION 10 UNIT  DAILY AT BEDTIME
     Route: 058
  4. BIOTIN [Concomitant]
     Active Substance: BIOTIN
     Route: 048
  5. ERYTHROMYCIN. [Concomitant]
     Active Substance: ERYTHROMYCIN
     Dosage: 4 TIMES A DAY FOR 1 WEEK, THEN 2 TIMES A DAY FOR 1 WEEK
     Route: 047
  6. AMARYL [Concomitant]
     Active Substance: GLIMEPIRIDE
     Dosage: BY MOUTH DAILY WITH BREAKFAST
     Route: 048
  7. ACTEMRA [Suspect]
     Active Substance: TOCILIZUMAB
  8. DEFINITY [Concomitant]
     Active Substance: PERFLUTREN
     Dosage: 1.1 MG/ML INJECTION
     Route: 042
  9. BACTRIM [Concomitant]
     Active Substance: SULFAMETHOXAZOLE\TRIMETHOPRIM
     Route: 047
  10. ACTEMRA [Suspect]
     Active Substance: TOCILIZUMAB
     Indication: GIANT CELL ARTERITIS
     Route: 058
  11. ACTEMRA [Suspect]
     Active Substance: TOCILIZUMAB
  12. PANTOPRAZOLE [Concomitant]
     Active Substance: PANTOPRAZOLE
     Dosage: 1 TABLET BY MOUTH DAILY
     Route: 048
  13. SULFAMETHOXAZOLE/TRIMETHOPRIM [Concomitant]
     Active Substance: SULFAMETHOXAZOLE\TRIMETHOPRIM
     Dosage: 800?160MG?TAKE 1 TABLET BY MOUTH EVERY MONDAY, WEDNESDAY, FRIDAY
     Route: 048
  14. ASPIRIN. [Concomitant]
     Active Substance: ASPIRIN
     Route: 048
  15. UBIDECARENONE [Concomitant]
     Active Substance: UBIDECARENONE
     Route: 048
  16. LISINOPRIL. [Concomitant]
     Active Substance: LISINOPRIL
     Route: 048
  17. PREDNISONE. [Concomitant]
     Active Substance: PREDNISONE
     Dosage: 3 TABLET PER DAY UNTIL SEEN BY RHEUMATOLOGY

REACTIONS (3)
  - Deafness [Unknown]
  - Blindness unilateral [Unknown]
  - Diabetes mellitus [Unknown]
